FAERS Safety Report 5830335-7 (Version None)
Quarter: 2008Q3

REPORT INFORMATION
  Report Type: 
  Country: None (occurrence: None)
  Receive Date: 20080801
  Receipt Date: 20080710
  Transmission Date: 20090109
  Serious: Yes (Hospitalization)
  Sender: FDA-Public Use
  Company Number: US-MERCK-0807USA01866

PATIENT
  Age: 88 Year
  Sex: Male

DRUGS (2)
  1. JANUVIA [Suspect]
     Indication: TYPE 2 DIABETES MELLITUS
     Route: 048
     Dates: start: 20071001, end: 20080204
  2. JANUVIA [Suspect]
     Route: 048
     Dates: start: 20080205, end: 20080708

REACTIONS (3)
  - BLISTER [None]
  - RASH ERYTHEMATOUS [None]
  - SWELLING [None]
